FAERS Safety Report 9122627 (Version 2)
Quarter: 2013Q2

REPORT INFORMATION
  Report Type: Spontaneous
  Country: US (occurrence: US)
  Receive Date: 20130114
  Receipt Date: 20130529
  Transmission Date: 20140414
  Serious: Yes (Other)
  Sender: FDA-Public Use
  Company Number: US-PFIZER INC-2013011570

PATIENT
  Age: 53 Year
  Sex: Male
  Weight: 136 kg

DRUGS (3)
  1. VIAGRA [Suspect]
     Indication: ERECTILE DYSFUNCTION
     Dosage: 50 MG, AS NEEDED
     Dates: start: 1998
  2. VIAGRA [Suspect]
     Dosage: 100 MG, AS NEEDED
  3. FUROSEMIDE [Concomitant]
     Indication: FLUID RETENTION
     Dosage: 80 MG, DAILY

REACTIONS (3)
  - Arthritis [Unknown]
  - Activities of daily living impaired [Unknown]
  - Arthropathy [Unknown]
